FAERS Safety Report 19353124 (Version 5)
Quarter: 2022Q1

REPORT INFORMATION
  Report Type: Spontaneous
  Country: JP (occurrence: JP)
  Receive Date: 20210531
  Receipt Date: 20220126
  Transmission Date: 20220423
  Serious: Yes (Other)
  Sender: FDA-Public Use
  Company Number: NVSJ2020JP009483

PATIENT
  Age: 73 Year
  Sex: Female
  Weight: 56.7 kg

DRUGS (2)
  1. BEOVU [Suspect]
     Active Substance: BROLUCIZUMAB-DBLL
     Indication: Neovascular age-related macular degeneration
     Dosage: 6 MG
     Route: 031
     Dates: start: 20200731, end: 20200731
  2. BEOVU [Suspect]
     Active Substance: BROLUCIZUMAB-DBLL
     Indication: Polypoidal choroidal vasculopathy

REACTIONS (4)
  - Retinal artery occlusion [Recovered/Resolved with Sequelae]
  - Retinal perivascular sheathing [Recovering/Resolving]
  - Vitreous floaters [Recovered/Resolved]
  - Retinal vascular disorder [Unknown]

NARRATIVE: CASE EVENT DATE: 20200923
